FAERS Safety Report 21020611 (Version 1)
Quarter: 2022Q2

REPORT INFORMATION
  Report Type: Report from Study
  Country: RO (occurrence: RO)
  Receive Date: 20220629
  Receipt Date: 20220629
  Transmission Date: 20220721
  Serious: Yes (Hospitalization, Other)
  Sender: FDA-Public Use
  Company Number: RO-CELLTRION INC.-2022RO009852

PATIENT

DRUGS (7)
  1. TRASTUZUMAB [Suspect]
     Active Substance: TRASTUZUMAB
     Indication: Breast cancer
     Dosage: 584 MG (LAST DOSE BEFORE SAE 20/APR/2022)
     Route: 041
     Dates: start: 20220413
  2. CYCLOPHOSPHAMIDE [Suspect]
     Active Substance: CYCLOPHOSPHAMIDE
     Indication: Breast cancer
     Dosage: ON 20/APR/2022, RECEIVED LAST DOSE OF DRUG PRIOR TO SAE WAS 1032
     Route: 042
     Dates: start: 20220131
  3. EPIRUBICIN [Suspect]
     Active Substance: EPIRUBICIN
     Indication: Breast cancer
     Dosage: ON 20/APR/2022, RECEIVED LAST DOSE OF DRUG PRIOR TO SAE WAS 155.
     Route: 042
     Dates: start: 20220131
  4. PERTUZUMAB [Suspect]
     Active Substance: PERTUZUMAB
     Indication: Breast cancer
     Dosage: 840 MG (LAST DOSE BEFORE SAE WAS GIVEN ON 20/04/2022)
     Route: 042
     Dates: start: 20220413
  5. CARBOPLATIN [Suspect]
     Active Substance: CARBOPLATIN
     Indication: Breast cancer
     Dosage: 195 MG (LAST DOSE BEFORE SAE 20/04/2022)
     Route: 042
     Dates: start: 20220413
  6. PACLITAXEL [Suspect]
     Active Substance: PACLITAXEL
     Indication: Breast cancer
     Dosage: 155 MG (LAST DOSE BEFORE SAE 20/04/2022)
     Route: 041
     Dates: start: 20220413
  7. ATEZOLIZUMAB [Concomitant]
     Active Substance: ATEZOLIZUMAB
     Indication: Breast cancer
     Dosage: ON 13/APR/2022, RECEIVED LAST DOSE OF DRUG PRIOR TO SAE WAS 1200 MG
     Route: 041
     Dates: start: 20220131

REACTIONS (2)
  - Anaemia [Recovered/Resolved]
  - Thrombocytopenia [Not Recovered/Not Resolved]

NARRATIVE: CASE EVENT DATE: 20220505
